FAERS Safety Report 20237119 (Version 1)
Quarter: 2021Q4

REPORT INFORMATION
  Report Type: Spontaneous
  Country: JP (occurrence: JP)
  Receive Date: 20211228
  Receipt Date: 20211228
  Transmission Date: 20220303
  Serious: Yes (Other)
  Sender: FDA-Public Use
  Company Number: JP-BAYER-2021A274843

PATIENT
  Sex: Male

DRUGS (1)
  1. STIVARGA [Suspect]
     Active Substance: REGORAFENIB
     Indication: Colon cancer
     Dosage: DAILY DOSE 120 MG
     Dates: start: 20210520

REACTIONS (3)
  - Colon cancer [None]
  - Tumour marker increased [None]
  - Off label use [None]

NARRATIVE: CASE EVENT DATE: 20210520
